FAERS Safety Report 7400701-7 (Version None)
Quarter: 2011Q2

REPORT INFORMATION
  Report Type: 
  Country: None (occurrence: None)
  Receive Date: 20110407
  Receipt Date: 20101129
  Transmission Date: 20111010
  Serious: Yes (Hospitalization)
  Sender: FDA-Public Use
  Company Number: A0898471A

PATIENT
  Age: 45 Year
  Sex: Female

DRUGS (1)
  1. AVANDIA [Suspect]
     Dosage: 4MG PER DAY
     Route: 048
     Dates: start: 20040202, end: 20051125

REACTIONS (3)
  - INJURY [None]
  - CHEST PAIN [None]
  - HYPERTENSION [None]
